FAERS Safety Report 25101499 (Version 1)
Quarter: 2025Q1

REPORT INFORMATION
  Report Type: Spontaneous
  Country: AU (occurrence: AU)
  Receive Date: 20250320
  Receipt Date: 20250320
  Transmission Date: 20250408
  Serious: Yes (Other)
  Sender: Kenvue
  Company Number: AU-TGA-0000768553

PATIENT

DRUGS (16)
  1. ACETAMINOPHEN [Suspect]
     Active Substance: ACETAMINOPHEN
     Indication: Product used for unknown indication
     Route: 065
  2. DOCUSATE SODIUM\SENNOSIDE B [Suspect]
     Active Substance: DOCUSATE SODIUM\SENNOSIDE B
     Indication: Product used for unknown indication
     Route: 065
  3. POLYETHYLENE GLYCOL, UNSPECIFIED [Suspect]
     Active Substance: POLYETHYLENE GLYCOL, UNSPECIFIED
     Indication: Product used for unknown indication
     Route: 065
  4. ASPIRIN [Suspect]
     Active Substance: ASPIRIN
     Indication: Product used for unknown indication
     Route: 065
  5. ASPIRIN [Suspect]
     Active Substance: ASPIRIN
     Indication: Product used for unknown indication
     Dosage: 100 MILLIGRAM, ONCE A DAY
     Route: 065
  6. ATORVASTATIN CALCIUM [Suspect]
     Active Substance: ATORVASTATIN CALCIUM
     Indication: Product used for unknown indication
     Route: 065
  7. ATORVASTATIN CALCIUM [Suspect]
     Active Substance: ATORVASTATIN CALCIUM
     Dosage: 200 MILLIGRAM, ONCE A DAY
     Route: 065
  8. CLOZAPINE [Suspect]
     Active Substance: CLOZAPINE
     Indication: Schizophrenia
     Dosage: 250 MILLIGRAM, ONCE A DAY
     Route: 065
     Dates: start: 20151005
  9. CLOZAPINE [Suspect]
     Active Substance: CLOZAPINE
     Indication: Schizophrenia
     Dosage: 250 MILLIGRAM, ONCE A DAY
     Route: 065
     Dates: start: 20230118
  10. CHOLECALCIFEROL [Suspect]
     Active Substance: CHOLECALCIFEROL
     Indication: Product used for unknown indication
     Route: 065
  11. LACTULOSE [Suspect]
     Active Substance: LACTULOSE
     Indication: Product used for unknown indication
     Dosage: 30 MILLILITER, ONCE A DAY
     Route: 065
  12. LACTULOSE [Suspect]
     Active Substance: LACTULOSE
     Dosage: 17 MILLIGRAM, TWICE A DAY
     Route: 065
  13. OLANZAPINE [Suspect]
     Active Substance: OLANZAPINE
     Indication: Product used for unknown indication
     Route: 065
  14. OLANZAPINE [Suspect]
     Active Substance: OLANZAPINE
     Route: 065
  15. ALBUTEROL SULFATE [Suspect]
     Active Substance: ALBUTEROL SULFATE
     Indication: Product used for unknown indication
     Route: 065
  16. OXAZEPAM [Suspect]
     Active Substance: OXAZEPAM
     Indication: Product used for unknown indication
     Dosage: 7.5 MILLIGRAM, TWICE A DAY
     Route: 065

REACTIONS (3)
  - Cardiac failure congestive [Unknown]
  - Cardiomyopathy [Unknown]
  - Overdose [Unknown]
